FAERS Safety Report 6903803-4 (Version None)
Quarter: 2010Q3

REPORT INFORMATION
  Report Type: 
  Country: None (occurrence: None)
  Receive Date: 20100804
  Receipt Date: 20081226
  Transmission Date: 20110219
  Serious: No
  Sender: FDA-Public Use
  Company Number: US-PFIZER INC-2008050662

PATIENT

DRUGS (2)
  1. LYRICA [Suspect]
     Dosage: 100 MG, EVERY 4 HRS
  2. CYMBALTA [Concomitant]

REACTIONS (3)
  - IMPAIRED HEALING [None]
  - PAIN IN EXTREMITY [None]
  - SCRATCH [None]
